FAERS Safety Report 7434899-1 (Version None)
Quarter: 2011Q2

REPORT INFORMATION
  Report Type: 
  Country: None (occurrence: None)
  Receive Date: 20110425
  Receipt Date: 20110412
  Transmission Date: 20111010
  Serious: Yes (Hospitalization)
  Sender: FDA-Public Use
  Company Number: US-CELGENEUS-163-21880-11041529

PATIENT
  Sex: Female
  Weight: 56.296 kg

DRUGS (1)
  1. REVLIMID [Suspect]
     Dosage: 5 MILLIGRAM
     Route: 048
     Dates: start: 20070924

REACTIONS (4)
  - HYPOKALAEMIA [None]
  - DYSPNOEA [None]
  - NASOPHARYNGITIS [None]
  - CARDIAC DISORDER [None]
